FAERS Safety Report 6905589-6 (Version None)
Quarter: 2010Q3

REPORT INFORMATION
  Report Type: 
  Country: None (occurrence: None)
  Receive Date: 20100804
  Receipt Date: 20100729
  Transmission Date: 20110219
  Serious: Yes (Hospitalization, Other)
  Sender: FDA-Public Use
  Company Number: BE-BRISTOL-MYERS SQUIBB COMPANY-15195282

PATIENT
  Age: 76 Year
  Sex: Male

DRUGS (1)
  1. MITOMYCIN [Suspect]
     Indication: TRABECULECTOMY
     Dosage: INJECTION
     Route: 031

REACTIONS (2)
  - CORNEAL EPITHELIUM DEFECT [None]
  - VISUAL ACUITY REDUCED [None]
